FAERS Safety Report 9547976 (Version 1)
Quarter: 2013Q3

REPORT INFORMATION
  Report Type: Spontaneous
  Country: US (occurrence: US)
  Receive Date: 20130924
  Receipt Date: 20130924
  Transmission Date: 20140515
  Serious: No
  Sender: FDA-Public Use
  Company Number: US-PURDUE-USA-2011-0069737

PATIENT
  Age: 62 Year
  Sex: Male

DRUGS (2)
  1. MORPHINE SULFATE (SIMILAR TO NDA 19-516) [Suspect]
     Indication: PAIN
     Dosage: UNK, SEE TEXT
  2. MORPHINE SULFATE (SIMILAR TO NDA 19-516) [Suspect]
     Dosage: 15 MG, TID
     Route: 048
     Dates: start: 20110608

REACTIONS (3)
  - Pyrexia [Not Recovered/Not Resolved]
  - Sedation [Unknown]
  - Malaise [Not Recovered/Not Resolved]
